FAERS Safety Report 22245848 (Version 2)
Quarter: 2023Q2

REPORT INFORMATION
  Report Type: Spontaneous
  Country: US (occurrence: US)
  Receive Date: 20230424
  Receipt Date: 20230606
  Transmission Date: 20230721
  Serious: Yes (Hospitalization, Other)
  Sender: FDA-Public Use
  Company Number: US-ORGANON-O2304USA002109

PATIENT
  Age: 71 Year
  Sex: Female

DRUGS (18)
  1. SINGULAIR [Suspect]
     Active Substance: MONTELUKAST SODIUM
     Indication: Product used for unknown indication
     Dosage: UNK
     Route: 048
  2. OFEV [Suspect]
     Active Substance: NINTEDANIB
     Indication: Idiopathic pulmonary fibrosis
     Dosage: 150 MILLIGRAM, Q12H
     Route: 048
     Dates: start: 20181211
  3. OFEV [Suspect]
     Active Substance: NINTEDANIB
     Dosage: UNK
  4. OFEV [Suspect]
     Active Substance: NINTEDANIB
     Dosage: UNK
  5. OFEV [Suspect]
     Active Substance: NINTEDANIB
     Dosage: UNK
  6. OFEV [Suspect]
     Active Substance: NINTEDANIB
     Dosage: UNK
  7. OFEV [Suspect]
     Active Substance: NINTEDANIB
     Dosage: UNK
  8. OFEV [Suspect]
     Active Substance: NINTEDANIB
     Dosage: UNK
  9. OFEV [Suspect]
     Active Substance: NINTEDANIB
     Dosage: UNK
  10. OFEV [Suspect]
     Active Substance: NINTEDANIB
     Dosage: UNK
  11. OFEV [Suspect]
     Active Substance: NINTEDANIB
     Dosage: UNK
  12. OFEV [Suspect]
     Active Substance: NINTEDANIB
     Dosage: UNK
  13. OFEV [Suspect]
     Active Substance: NINTEDANIB
     Dosage: UNK
  14. OFEV [Suspect]
     Active Substance: NINTEDANIB
     Dosage: UNK
  15. OFEV [Suspect]
     Active Substance: NINTEDANIB
     Dosage: UNK
  16. UPTRAVI [Concomitant]
     Active Substance: SELEXIPAG
     Indication: Product used for unknown indication
     Dosage: UNK
  17. OPSUMIT [Concomitant]
     Active Substance: MACITENTAN
     Indication: Product used for unknown indication
     Dosage: UNK
  18. TADALAFIL [Concomitant]
     Active Substance: TADALAFIL
     Indication: Product used for unknown indication
     Dosage: UNK

REACTIONS (15)
  - Dyspnoea [Unknown]
  - Hypervolaemia [Unknown]
  - Surgery [Unknown]
  - Syncope [Unknown]
  - Pneumonia viral [Unknown]
  - Oxygen saturation decreased [Unknown]
  - Lower respiratory tract congestion [Unknown]
  - Secretion discharge [Unknown]
  - Neuralgia [Recovered/Resolved]
  - Sinusitis [Unknown]
  - Gastrointestinal pain [Unknown]
  - Nasal disorder [Unknown]
  - Diarrhoea [Unknown]
  - Hypoaesthesia [Unknown]
  - Nausea [Unknown]

NARRATIVE: CASE EVENT DATE: 20210701
